FAERS Safety Report 10516705 (Version 1)
Quarter: 2014Q4

REPORT INFORMATION
  Report Type: Spontaneous
  Country: US (occurrence: None)
  Receive Date: 20141003
  Receipt Date: 20141003
  Transmission Date: 20150528
  Serious: Yes (Other)
  Sender: FDA-Public Use
  Company Number: 1354400

PATIENT
  Age: 39 Year
  Sex: Female

DRUGS (5)
  1. INCIVEK [Suspect]
     Active Substance: TELAPREVIR
     Indication: CHRONIC HEPATITIS C
     Dosage: (750 MG 3 IN 1 D
     Route: 048
     Dates: start: 20131009, end: 20140219
  2. SYNTHROID [Concomitant]
     Active Substance: LEVOTHYROXINE SODIUM
  3. RIBAVIRIN (RIBAVIRIN) [Suspect]
     Active Substance: RIBAVIRIN
     Indication: CHRONIC HEPATITIS C
     Dosage: 600 MG 2 IN 1 D
     Route: 048
     Dates: start: 20131009, end: 20140219
  4. PEGASYS [Suspect]
     Active Substance: PEGINTERFERON ALFA-2A
     Indication: CHRONIC HEPATITIS C
     Dosage: 1 IN 1 D
     Route: 058
     Dates: start: 20131009, end: 20140219
  5. MOTRIN [Concomitant]
     Active Substance: IBUPROFEN

REACTIONS (5)
  - Headache [None]
  - Alopecia [None]
  - Full blood count decreased [None]
  - Nausea [None]
  - Rash [None]

NARRATIVE: CASE EVENT DATE: 201401
